FAERS Safety Report 9161268 (Version 1)
Quarter: 2013Q1

REPORT INFORMATION
  Report Type: Spontaneous
  Country: ES (occurrence: ES)
  Receive Date: 20130313
  Receipt Date: 20130313
  Transmission Date: 20140127
  Serious: Yes (Other)
  Sender: FDA-Public Use
  Company Number: ES-009507513-1303ESP004667

PATIENT
  Age: 38 Year
  Sex: Female
  Weight: 45.4 kg

DRUGS (7)
  1. NOXAFIL [Suspect]
     Indication: PROPHYLAXIS
     Dosage: UNK
     Route: 065
     Dates: start: 20120919
  2. MABTHERA [Suspect]
     Indication: CHEMOTHERAPY
     Route: 042
     Dates: start: 20120919, end: 20120919
  3. METHOTREXATE [Suspect]
     Indication: CHEMOTHERAPY
     Route: 042
     Dates: start: 20120920, end: 20120920
  4. PANTOPRAZOLE [Concomitant]
     Route: 042
     Dates: start: 20120920
  5. SEPTRIN FORTE [Concomitant]
     Route: 065
     Dates: start: 20120920
  6. ACYCLOVIR [Concomitant]
     Route: 042
     Dates: start: 20120920
  7. FORTECORTIN [Concomitant]
     Indication: CHEMOTHERAPY
     Dosage: UNK
     Route: 042
     Dates: start: 20120920

REACTIONS (1)
  - Vision blurred [Recovered/Resolved]
